FAERS Safety Report 6276130-9 (Version None)
Quarter: 2009Q3

REPORT INFORMATION
  Report Type: 
  Country: None (occurrence: None)
  Receive Date: 20090717
  Receipt Date: 20090717
  Transmission Date: 20100115
  Serious: Yes (Other)
  Sender: FDA-Public Use
  Company Number: None

PATIENT
  Sex: Female
  Weight: 58.9676 kg

DRUGS (3)
  1. METRONIDAZOLE [Suspect]
     Indication: VAGINAL INFECTION
     Dosage: 500 MG TWICE DAILY ORALLY 047
     Dates: start: 20090618
  2. METRONIDAZOLE [Suspect]
     Indication: VAGINAL INFECTION
     Dosage: 500 MG TWICE DAILY ORALLY 047
     Dates: start: 20090619
  3. METRONIDAZOLE [Suspect]
     Indication: VAGINAL INFECTION
     Dosage: 500 MG TWICE DAILY ORALLY 047
     Dates: start: 20090620

REACTIONS (2)
  - ABDOMINAL PAIN [None]
  - HAEMORRHOIDS [None]
